FAERS Safety Report 9409531 (Version 1)
Quarter: 2013Q3

REPORT INFORMATION
  Report Type: Spontaneous
  Country: US (occurrence: None)
  Receive Date: 20130716
  Receipt Date: 20130716
  Transmission Date: 20140515
  Serious: Yes (Other)
  Sender: FDA-Public Use
  Company Number: ADE13-016

PATIENT
  Age: 68 Year
  Sex: Male
  Weight: 99.7 kg

DRUGS (1)
  1. HEPARIN [Suspect]
     Indication: CARDIOPULMONARY BYPASS
     Dosage: 50,000 UNITS TOTAL DOSE IV
     Route: 042
     Dates: start: 20130621

REACTIONS (1)
  - Drug effect decreased [None]
